FAERS Safety Report 9503405 (Version 2)
Quarter: 2013Q4

REPORT INFORMATION
  Report Type: Spontaneous
  Country: US (occurrence: US)
  Receive Date: 20130906
  Receipt Date: 20131015
  Transmission Date: 20140711
  Serious: Yes (Hospitalization, Other)
  Sender: FDA-Public Use
  Company Number: US-INCYTE CORPORATION-2013IN001974

PATIENT
  Age: 92 Year
  Sex: Female

DRUGS (2)
  1. JAKAFI [Suspect]
     Indication: POLYCYTHAEMIA VERA
     Dosage: 20 MG, BID
     Route: 048
     Dates: start: 20130509, end: 20130824
  2. ZELBORAF [Concomitant]

REACTIONS (5)
  - Anaemia [Unknown]
  - Haemorrhage [Recovering/Resolving]
  - Hospitalisation [Unknown]
  - Malignant melanoma [Unknown]
  - Asthenia [Unknown]
